FAERS Safety Report 12197670 (Version 1)
Quarter: 2016Q1

REPORT INFORMATION
  Report Type: Spontaneous
  Country: US (occurrence: US)
  Receive Date: 20160322
  Receipt Date: 20160322
  Transmission Date: 20160526
  Serious: No
  Sender: FDA-Public Use
  Company Number: US-009507513-1603USA006528

PATIENT
  Age: 41 Year
  Sex: Female

DRUGS (7)
  1. FOLLISTIM [Suspect]
     Active Substance: FOLLITROPIN
     Dosage: 300 IU IN THE EVENING
     Route: 058
     Dates: start: 20160301, end: 20160307
  2. ENDOMETRIN [Concomitant]
     Active Substance: PROGESTERONE
     Dosage: UNK
  3. MEDROL [Concomitant]
     Active Substance: METHYLPREDNISOLONE
     Dosage: UNK
  4. FOLLISTIM [Suspect]
     Active Substance: FOLLITROPIN
     Indication: IN VITRO FERTILISATION
     Dosage: 300 IU IN THE MORNING
     Route: 058
     Dates: start: 20160301
  5. AZITHROMYCIN ANHYDROUS. [Concomitant]
     Active Substance: AZITHROMYCIN ANHYDROUS
     Dosage: UNK
  6. GONADOTROPIN, CHORIONIC [Concomitant]
     Active Substance: CHORIOGONADOTROPIN ALFA
     Dosage: UNK
  7. FOLLISTIM [Suspect]
     Active Substance: FOLLITROPIN
     Dosage: 450 IU IN THE EVENING
     Route: 058
     Dates: start: 20160308

REACTIONS (1)
  - Rash [Not Recovered/Not Resolved]

NARRATIVE: CASE EVENT DATE: 20160309
